FAERS Safety Report 7690904-9 (Version None)
Quarter: 2011Q3

REPORT INFORMATION
  Report Type: 
  Country: None (occurrence: None)
  Receive Date: 20110818
  Receipt Date: 20110818
  Transmission Date: 20111222
  Serious: Yes (Other)
  Sender: FDA-Public Use
  Company Number: None

PATIENT
  Sex: Female
  Weight: 62.595 kg

DRUGS (1)
  1. LIOTHYRONINE SODIUM [Suspect]
     Indication: AUTOIMMUNE THYROIDITIS
     Dosage: 10 MCG
     Route: 048
     Dates: start: 20110201, end: 20110817

REACTIONS (6)
  - PRODUCT SIZE ISSUE [None]
  - CONSTIPATION [None]
  - DRUG INEFFECTIVE [None]
  - AUTOIMMUNE THYROIDITIS [None]
  - CONDITION AGGRAVATED [None]
  - PRODUCT SUBSTITUTION ISSUE [None]
